FAERS Safety Report 13602090 (Version 1)
Quarter: 2017Q2

REPORT INFORMATION
  Report Type: Spontaneous
  Country: JP (occurrence: JP)
  Receive Date: 20170601
  Receipt Date: 20170601
  Transmission Date: 20170830
  Serious: Yes (Other)
  Sender: FDA-Public Use
  Company Number: JP-GUERBET-JP-20170099

PATIENT
  Age: 94 Year
  Sex: Female

DRUGS (2)
  1. HISTOACRYL [Suspect]
     Active Substance: ENBUCRILATE
     Indication: THERAPEUTIC EMBOLISATION
     Route: 013
  2. LIPIODOL [Suspect]
     Active Substance: ETHIODIZED OIL
     Indication: THERAPEUTIC EMBOLISATION
     Route: 013

REACTIONS (2)
  - Splenic infarction [Recovered/Resolved]
  - Product use in unapproved indication [Unknown]
